FAERS Safety Report 6226099-8 (Version None)
Quarter: 2009Q2

REPORT INFORMATION
  Report Type: 
  Country: None (occurrence: None)
  Receive Date: 20090612
  Receipt Date: 20090507
  Transmission Date: 20091009
  Serious: No
  Sender: FDA-Public Use
  Company Number: US-ABBOTT-09P-163-0572237-00

PATIENT
  Sex: Male
  Weight: 72.64 kg

DRUGS (5)
  1. HUMIRA [Suspect]
     Indication: CROHN'S DISEASE
     Route: 058
     Dates: start: 20081001
  2. ASACOL [Concomitant]
     Indication: CROHN'S DISEASE
     Route: 048
  3. EFFEXOR [Concomitant]
     Indication: ANXIETY DISORDER
     Route: 048
  4. PSEUDOEPHEDRINE-CHLORPHENIRAMINE [Concomitant]
     Indication: HYPERSENSITIVITY
     Route: 048
  5. ASTELIN [Concomitant]
     Indication: HYPERSENSITIVITY
     Route: 045

REACTIONS (2)
  - INJECTION SITE NODULE [None]
  - INJECTION SITE PAIN [None]
